FAERS Safety Report 20156646 (Version 1)
Quarter: 2021Q4

REPORT INFORMATION
  Report Type: Spontaneous
  Country: US (occurrence: None)
  Receive Date: 20211207
  Receipt Date: 20211207
  Transmission Date: 20220303
  Serious: Yes (Other)
  Sender: FDA-Public Use
  Company Number: None

PATIENT
  Age: 65 Year
  Sex: Female
  Weight: 55.35 kg

DRUGS (10)
  1. XPOVIO [Suspect]
     Active Substance: SELINEXOR
     Indication: Plasma cell myeloma
     Dosage: FREQUENCY : DAILY;?
     Route: 048
     Dates: start: 20210809, end: 20211207
  2. ACYCLOVIR [Concomitant]
     Active Substance: ACYCLOVIR
  3. Ciclopirox Olamine 0.77% [Concomitant]
  4. FAMOTIDINE [Concomitant]
     Active Substance: FAMOTIDINE
  5. LEVOTHYROXINE [Concomitant]
     Active Substance: LEVOTHYROXINE
  6. LIDOCAINE 5% [Concomitant]
     Active Substance: LIDOCAINE
  7. VITAMINS [Concomitant]
     Active Substance: VITAMINS
  8. OLANZAPINE [Concomitant]
     Active Substance: OLANZAPINE
  9. ONDANSETRON [Concomitant]
     Active Substance: ONDANSETRON
  10. VALACYCLOVIR [Concomitant]
     Active Substance: VALACYCLOVIR HYDROCHLORIDE

REACTIONS (2)
  - Disease progression [None]
  - Therapy cessation [None]

NARRATIVE: CASE EVENT DATE: 20211207
